FAERS Safety Report 15253309 (Version 2)
Quarter: 2018Q3

REPORT INFORMATION
  Report Type: Spontaneous
  Country: DE (occurrence: DE)
  Receive Date: 20180807
  Receipt Date: 20180905
  Transmission Date: 20181010
  Serious: Yes (Other)
  Sender: FDA-Public Use
  Company Number: PHHY2018DE064516

PATIENT
  Sex: Female

DRUGS (2)
  1. TAFINLAR [Suspect]
     Active Substance: DABRAFENIB MESYLATE
     Indication: PRODUCT USED FOR UNKNOWN INDICATION
     Dosage: 2 DF, BID2SDO
     Route: 065
     Dates: start: 201805
  2. MEKINIST [Suspect]
     Active Substance: TRAMETINIB DIMETHYL SULFOXIDE
     Indication: PRODUCT USED FOR UNKNOWN INDICATION
     Dosage: UNK UNK, QD
     Route: 065
     Dates: start: 201805

REACTIONS (6)
  - Pyrexia [Recovering/Resolving]
  - Chills [Unknown]
  - Tremor [Unknown]
  - Intraocular pressure increased [Unknown]
  - Visual impairment [Unknown]
  - Metastasis [Unknown]

NARRATIVE: CASE EVENT DATE: 2018
